FAERS Safety Report 12440676 (Version 1)
Quarter: 2016Q2

REPORT INFORMATION
  Report Type: Spontaneous
  Country: VE (occurrence: VE)
  Receive Date: 20160606
  Receipt Date: 20160606
  Transmission Date: 20160815
  Serious: Yes (Hospitalization, Other)
  Sender: FDA-Public Use
  Company Number: PHHY2016VE075881

PATIENT
  Sex: Female

DRUGS (5)
  1. FORADIL [Suspect]
     Active Substance: FORMOTEROL FUMARATE
     Indication: CHRONIC OBSTRUCTIVE PULMONARY DISEASE
     Dosage: 12 UG, BID (EVERY 12 HOURS)
     Route: 065
  2. FORADIL [Suspect]
     Active Substance: FORMOTEROL FUMARATE
     Indication: ASTHMA
  3. MIFLONIDE [Suspect]
     Active Substance: BUDESONIDE
     Indication: ASTHMA
  4. MIFLONIDE [Suspect]
     Active Substance: BUDESONIDE
     Indication: CHRONIC OBSTRUCTIVE PULMONARY DISEASE
     Dosage: 400 UG, BID (EVERY 12 HOURS)
     Route: 065
  5. SPIRIVA [Concomitant]
     Active Substance: TIOTROPIUM BROMIDE MONOHYDRATE
     Indication: CHRONIC OBSTRUCTIVE PULMONARY DISEASE
     Dosage: 18 UG, QD
     Route: 065

REACTIONS (8)
  - Pneumonia bacterial [Recovering/Resolving]
  - Intestinal strangulation [Recovering/Resolving]
  - Abdominal adhesions [Recovering/Resolving]
  - Bronchial disorder [Recovering/Resolving]
  - Pain [Recovering/Resolving]
  - Asthmatic crisis [Recovering/Resolving]
  - Obstructive airways disorder [Recovering/Resolving]
  - Neoplasm malignant [Recovering/Resolving]
